FAERS Safety Report 6235750-8 (Version None)
Quarter: 2009Q2

REPORT INFORMATION
  Report Type: 
  Country: None (occurrence: None)
  Receive Date: 20090619
  Receipt Date: 20090616
  Transmission Date: 20091009
  Serious: No
  Sender: FDA-Public Use
  Company Number: US-TEVA-196960USA

PATIENT
  Sex: Male
  Weight: 22.7 kg

DRUGS (2)
  1. BECLOMETASONE DIPROPIONATE INHALATION, 0.04 MG AND 0.08 MG [Suspect]
     Indication: ASTHMA
     Dosage: BID
     Route: 045
     Dates: start: 20081101, end: 20090501
  2. ALBUTEROL [Concomitant]
     Route: 055

REACTIONS (3)
  - AGGRESSION [None]
  - MOOD SWINGS [None]
  - PSYCHOTIC DISORDER [None]
